FAERS Safety Report 10449581 (Version 1)
Quarter: 2014Q3

REPORT INFORMATION
  Report Type: Report from Study
  Country: BR (occurrence: BR)
  Receive Date: 20140912
  Receipt Date: 20140912
  Transmission Date: 20150326
  Serious: Yes (Death, Hospitalization, Other)
  Sender: FDA-Public Use
  Company Number: PHHY2014BR118139

PATIENT
  Sex: Male
  Weight: 63 kg

DRUGS (5)
  1. GLIMEPIRIDE. [Concomitant]
     Active Substance: GLIMEPIRIDE
     Indication: DIABETES MELLITUS
     Dosage: UNK 4MG, UNK
     Dates: end: 20140822
  2. DIOVAN [Suspect]
     Active Substance: VALSARTAN
     Indication: HYPERTENSION
     Dosage: UNK UKN, BID
     Route: 048
     Dates: end: 20140822
  3. GLIFAGE [Concomitant]
     Active Substance: METFORMIN HYDROCHLORIDE
     Indication: DIABETES MELLITUS
     Dosage: UNK 500 MG, UNK
     Dates: end: 20140822
  4. INSULIN NOVOLIN [Concomitant]
     Indication: DIABETES MELLITUS
     Dosage: UNK
     Dates: end: 20140822
  5. ACID ACETYLSALICYLIC [Concomitant]
     Indication: HYPERTENSION
     Dosage: UNK 100MG, UNK
     Dates: end: 20140822

REACTIONS (2)
  - Intracranial aneurysm [Fatal]
  - Malaise [Unknown]
